FAERS Safety Report 5234134-9 (Version None)
Quarter: 2007Q1

REPORT INFORMATION
  Report Type: 
  Country: None (occurrence: None)
  Receive Date: 20070208
  Receipt Date: 20070201
  Transmission Date: 20070707
  Serious: Yes (Hospitalization)
  Sender: FDA-Public Use
  Company Number: JP-MERCK-0702USA00754

PATIENT
  Age: 14 Year
  Sex: Male

DRUGS (1)
  1. MAXALT [Suspect]
     Route: 048

REACTIONS (2)
  - OVERDOSE [None]
  - SHOCK [None]
